FAERS Safety Report 24934929 (Version 2)
Quarter: 2025Q3

REPORT INFORMATION
  Report Type: Spontaneous
  Country: CN (occurrence: CN)
  Receive Date: 20250206
  Receipt Date: 20250903
  Transmission Date: 20251021
  Serious: Yes (Disabling)
  Sender: CHEPLAPHARM
  Company Number: CN-ROCHE-10000075198

PATIENT
  Age: 74 Year
  Sex: Male
  Weight: 63.5 kg

DRUGS (3)
  1. CAPECITABINE [Suspect]
     Active Substance: CAPECITABINE
     Indication: Hepatic cancer
     Route: 048
     Dates: start: 202410
  2. TECENTRIQ [Suspect]
     Active Substance: ATEZOLIZUMAB
     Indication: Hepatic cancer
     Route: 042
     Dates: start: 20240722
  3. BEVACIZUMAB [Suspect]
     Active Substance: BEVACIZUMAB
     Indication: Hepatic cancer
     Dosage: 15 MG/KG EVERY 21 DAYS; 100 MG (4ML)/BOTTLE/BOX; ROA: INTRAVENOUS DRIP
     Route: 042
     Dates: start: 20240722

REACTIONS (10)
  - Back pain [Not Recovered/Not Resolved]
  - Pain in extremity [Not Recovered/Not Resolved]
  - Cancer pain [Not Recovered/Not Resolved]
  - Pain [Not Recovered/Not Resolved]
  - Gait disturbance [Not Recovered/Not Resolved]
  - Vitiligo [Not Recovered/Not Resolved]
  - Asthenia [Recovering/Resolving]
  - Decreased appetite [Recovering/Resolving]
  - Drug intolerance [Unknown]
  - Product use in unapproved indication [Recovered/Resolved]

NARRATIVE: CASE EVENT DATE: 20240701
